FAERS Safety Report 5414959-7 (Version None)
Quarter: 2007Q3

REPORT INFORMATION
  Report Type: 
  Country: None (occurrence: None)
  Receive Date: 20070815
  Receipt Date: 20070807
  Transmission Date: 20080115
  Serious: Yes (Other)
  Sender: FDA-Public Use
  Company Number: US-JNJFOC-20070802439

PATIENT
  Sex: Female

DRUGS (2)
  1. ULTRAM ER [Suspect]
     Indication: PAIN
     Route: 048
  2. UNKNOWN MEDICATIONS [Interacting]
     Indication: DRUG USE FOR UNKNOWN INDICATION
     Route: 065

REACTIONS (3)
  - DELUSION [None]
  - DRUG INTERACTION [None]
  - NAUSEA [None]
